FAERS Safety Report 4996872-2 (Version None)
Quarter: 2006Q2

REPORT INFORMATION
  Report Type: 
  Country: None (occurrence: None)
  Receive Date: 20060505
  Receipt Date: 20060406
  Transmission Date: 20061013
  Serious: Yes (Life-Threatening, Hospitalization)
  Sender: FDA-Public Use
  Company Number: 2006000804

PATIENT
  Age: 58 Year
  Sex: Female

DRUGS (2)
  1. TARCEVA [Suspect]
     Indication: NON-SMALL CELL LUNG CANCER
     Dosage: 150 MG (QD), ORAL  ; 1000 MG (Q WEEK), ORAL
     Route: 048
     Dates: start: 20050301, end: 20060201
  2. TARCEVA [Suspect]
     Indication: NON-SMALL CELL LUNG CANCER
     Dosage: 150 MG (QD), ORAL  ; 1000 MG (Q WEEK), ORAL
     Route: 048
     Dates: start: 20051208, end: 20060307

REACTIONS (3)
  - COLITIS PSEUDOMEMBRANOUS [None]
  - RASH [None]
  - SINUSITIS [None]
